FAERS Safety Report 7765642-4 (Version None)
Quarter: 2011Q3

REPORT INFORMATION
  Report Type: 
  Country: None (occurrence: None)
  Receive Date: 20110921
  Receipt Date: 20110914
  Transmission Date: 20111222
  Serious: Yes (Hospitalization)
  Sender: FDA-Public Use
  Company Number: US-BAYER-2011-088126

PATIENT
  Age: 53 Year
  Sex: Male

DRUGS (1)
  1. ULTRAVIST 150 [Suspect]
     Indication: COMPUTERISED TOMOGRAM
     Dosage: 55 ML, ONCE

REACTIONS (5)
  - THROAT TIGHTNESS [None]
  - DYSPHONIA [None]
  - SWELLING FACE [None]
  - STRIDOR [None]
  - VOMITING [None]
